FAERS Safety Report 7936465-8 (Version None)
Quarter: 2011Q4

REPORT INFORMATION
  Report Type: 
  Country: None (occurrence: None)
  Receive Date: 20111123
  Receipt Date: 20111116
  Transmission Date: 20120403
  Serious: Yes (Hospitalization, Other)
  Sender: FDA-Public Use
  Company Number: US-SANOFI-AVENTIS-2011SA075716

PATIENT
  Sex: Male

DRUGS (5)
  1. PLAVIX [Suspect]
     Route: 048
     Dates: start: 20090101
  2. METOPROLOL TARTRATE [Concomitant]
  3. SUCRALFATE [Concomitant]
  4. LOVASTATIN [Concomitant]
  5. ALLOPURINOL [Concomitant]
     Indication: GOUT

REACTIONS (3)
  - CORONARY ARTERY OCCLUSION [None]
  - GASTRIC ULCER HAEMORRHAGE [None]
  - DEVICE OCCLUSION [None]
